FAERS Safety Report 16449926 (Version 1)
Quarter: 2019Q2

REPORT INFORMATION
  Report Type: Spontaneous
  Country: US (occurrence: US)
  Receive Date: 20190619
  Receipt Date: 20190619
  Transmission Date: 20190711
  Serious: No
  Sender: FDA-Public Use
  Company Number: US-ROCHE-2119981

PATIENT
  Sex: Female

DRUGS (4)
  1. ACTEMRA [Suspect]
     Active Substance: TOCILIZUMAB
     Indication: PRODUCT USED FOR UNKNOWN INDICATION
     Dosage: 80MG VIAL
     Route: 042
  2. ACTEMRA [Suspect]
     Active Substance: TOCILIZUMAB
     Dosage: 80MG VIAL
     Route: 042
     Dates: start: 20180404
  3. ACTEMRA [Suspect]
     Active Substance: TOCILIZUMAB
     Dosage: 200 MG VIAL
     Route: 042
  4. ACTEMRA [Suspect]
     Active Substance: TOCILIZUMAB
     Dosage: 80MG VIAL
     Route: 042
     Dates: start: 20180502

REACTIONS (1)
  - Back pain [Unknown]
